FAERS Safety Report 26139925 (Version 2)
Quarter: 2025Q4

REPORT INFORMATION
  Report Type: Spontaneous
  Country: CN (occurrence: CN)
  Receive Date: 20251210
  Receipt Date: 20251218
  Transmission Date: 20260118
  Serious: Yes (Hospitalization)
  Sender: PFIZER
  Company Number: CN-PFIZER INC-202500238565

PATIENT
  Sex: Female

DRUGS (1)
  1. RITLECITINIB [Suspect]
     Active Substance: RITLECITINIB
     Indication: Alopecia areata
     Dosage: 50 MG, 1X/DAY
     Route: 048
     Dates: start: 20250531, end: 20251115

REACTIONS (1)
  - Benign lung neoplasm [Recovering/Resolving]

NARRATIVE: CASE EVENT DATE: 20251001
